FAERS Safety Report 22280531 (Version 1)
Quarter: 2023Q2

REPORT INFORMATION
  Report Type: Spontaneous
  Country: US (occurrence: None)
  Receive Date: 20230502
  Receipt Date: 20230502
  Transmission Date: 20230722
  Serious: No
  Sender: FDA-Public Use
  Company Number: None

PATIENT
  Sex: Female
  Weight: 103.95 kg

DRUGS (1)
  1. RUXIENCE [Suspect]
     Active Substance: RITUXIMAB-PVVR
     Indication: Diffuse large B-cell lymphoma stage IV
     Dosage: 780 MG  Q3W INTRAVENOUS DRIP?
     Route: 041
     Dates: start: 20230124, end: 20230124

REACTIONS (4)
  - Oropharyngeal discomfort [None]
  - Infusion related reaction [None]
  - Throat tightness [None]
  - Oropharyngeal pain [None]
